FAERS Safety Report 7289028-4 (Version None)
Quarter: 2011Q1

REPORT INFORMATION
  Report Type: 
  Country: None (occurrence: None)
  Receive Date: 20110211
  Receipt Date: 20110127
  Transmission Date: 20110831
  Serious: Yes (Death, Other)
  Sender: FDA-Public Use
  Company Number: IL-CELGENEUS-082-C5013-10110403

PATIENT
  Sex: Male

DRUGS (34)
  1. WHOLE BLOOD [Concomitant]
     Dosage: 2 UNITS
     Route: 051
     Dates: start: 20100121, end: 20100121
  2. WHOLE BLOOD [Concomitant]
     Dosage: 2 UNITS
     Route: 051
     Dates: start: 20100214, end: 20100214
  3. WHOLE BLOOD [Concomitant]
     Route: 051
     Dates: start: 20100223, end: 20100223
  4. NEUPOGEN [Concomitant]
     Indication: NEUTROPENIA
  5. CC-5013 [Suspect]
     Route: 048
     Dates: start: 20080806, end: 20090203
  6. EPOETIN BETA [Concomitant]
     Indication: ANAEMIA
     Route: 065
     Dates: start: 20080326, end: 20100319
  7. WHOLE BLOOD [Concomitant]
     Indication: PANCYTOPENIA
     Route: 051
     Dates: start: 20090128, end: 20090128
  8. LOSARTAN POTASSIUM [Concomitant]
     Route: 065
  9. OXYGEN [Concomitant]
     Route: 065
  10. PREDNISONE [Suspect]
     Route: 065
     Dates: start: 20071227
  11. WHOLE BLOOD [Concomitant]
     Route: 051
     Dates: start: 20100218, end: 20100218
  12. WHOLE BLOOD [Concomitant]
     Route: 051
     Dates: start: 20100304, end: 20100304
  13. RECORMON [Concomitant]
     Route: 065
  14. CC-5013 [Suspect]
     Route: 048
     Dates: start: 20071227, end: 20080623
  15. MELPHALAN HYDROCHLORIDE [Suspect]
     Route: 065
  16. WHOLE BLOOD [Concomitant]
     Route: 051
     Dates: start: 20091224, end: 20091224
  17. WHOLE BLOOD [Concomitant]
     Route: 051
     Dates: start: 20100207, end: 20100207
  18. FUROSEMIDE [Concomitant]
     Route: 065
  19. NEUPOGEN [Concomitant]
     Indication: PANCYTOPENIA
     Route: 051
     Dates: start: 20070801
  20. NEUPOGEN [Concomitant]
     Indication: NEUTROPENIA
     Route: 065
     Dates: start: 20080117, end: 20090217
  21. PREDNISONE [Suspect]
     Route: 065
  22. REVLIMID [Suspect]
     Route: 065
  23. WHOLE BLOOD [Concomitant]
     Route: 051
     Dates: start: 20100106, end: 20100106
  24. ZAROXOLYN [Concomitant]
     Route: 065
  25. DOPAMINE [Concomitant]
     Route: 065
     Dates: start: 20100301
  26. SIMVASTATIN [Concomitant]
     Route: 065
  27. MELPHALAN HYDROCHLORIDE [Suspect]
     Route: 065
     Dates: start: 20071227
  28. WHOLE BLOOD [Concomitant]
     Route: 051
     Dates: start: 20090331, end: 20090331
  29. WHOLE BLOOD [Concomitant]
     Dosage: 2 UNITS
     Route: 051
     Dates: start: 20100126, end: 20100126
  30. GASTRO [Concomitant]
     Route: 065
  31. WHOLE BLOOD [Concomitant]
     Route: 051
     Dates: start: 20091206, end: 20091207
  32. WHOLE BLOOD [Concomitant]
     Dosage: 2 UNITS
     Route: 051
     Dates: start: 20100301, end: 20100301
  33. SPIRONOLACTONE [Concomitant]
     Route: 065
  34. DOPAMINE [Concomitant]

REACTIONS (2)
  - MYOCARDIAL ISCHAEMIA [None]
  - ACUTE MYELOID LEUKAEMIA [None]
